FAERS Safety Report 15651064 (Version 1)
Quarter: 2018Q4

REPORT INFORMATION
  Report Type: Spontaneous
  Country: DE (occurrence: DE)
  Receive Date: 20181123
  Receipt Date: 20181123
  Transmission Date: 20190205
  Serious: Yes (Hospitalization)
  Sender: FDA-Public Use
  Company Number: DE-TEVA-2018-DE-977636

PATIENT
  Sex: Female

DRUGS (2)
  1. NIFEDIPIN-RATIOPHARM TROPFEN [Suspect]
     Active Substance: NIFEDIPINE
     Indication: METEOROPATHY
     Dates: start: 201809, end: 20180914
  2. TELMISARTAN-RATIOPHARM 20 MG TABLETTEN [Suspect]
     Active Substance: TELMISARTAN
     Indication: HYPERTENSION
     Dosage: 20 MILLIGRAM DAILY; FOR SEVERAL YEARS
     Route: 048
     Dates: start: 2013, end: 201809

REACTIONS (2)
  - Rash generalised [Unknown]
  - Drug eruption [Recovering/Resolving]

NARRATIVE: CASE EVENT DATE: 2018
